FAERS Safety Report 17968767 (Version 8)
Quarter: 2025Q3

REPORT INFORMATION
  Report Type: Report from Study
  Country: LB (occurrence: LB)
  Receive Date: 20200701
  Receipt Date: 20250704
  Transmission Date: 20251020
  Serious: Yes (Disabling, Other)
  Sender: NOVARTIS
  Company Number: NVSC2020LB180432

PATIENT
  Age: 54 Year
  Sex: Female
  Weight: 68 kg

DRUGS (2)
  1. GLIVEC [Suspect]
     Active Substance: IMATINIB MESYLATE
     Indication: Gastrointestinal stromal tumour
     Route: 048
     Dates: start: 20200324
  2. VITAMIN B [Concomitant]
     Active Substance: VITAMIN B
     Indication: Product used for unknown indication
     Dosage: 100000 UG, QD
     Route: 065

REACTIONS (34)
  - Burning sensation [Not Recovered/Not Resolved]
  - Arthralgia [Not Recovered/Not Resolved]
  - Pain in extremity [Not Recovered/Not Resolved]
  - Musculoskeletal chest pain [Not Recovered/Not Resolved]
  - Respiratory distress [Unknown]
  - Loss of consciousness [Unknown]
  - Dyspnoea [Unknown]
  - Stridor [Unknown]
  - SARS-CoV-2 test positive [Recovered/Resolved]
  - Myalgia [Recovered/Resolved]
  - Cough [Recovered/Resolved]
  - Pyrexia [Recovered/Resolved]
  - Headache [Recovered/Resolved]
  - Nausea [Recovered/Resolved]
  - Fatigue [Recovered/Resolved]
  - Diarrhoea [Recovered/Resolved with Sequelae]
  - Anosmia [Recovered/Resolved]
  - Ageusia [Recovered/Resolved]
  - Oropharyngeal pain [Recovered/Resolved]
  - Swelling [Not Recovered/Not Resolved]
  - Influenza [Recovered/Resolved]
  - Electrolyte imbalance [Unknown]
  - Hypophagia [Unknown]
  - Dysphagia [Unknown]
  - Abdominal pain [Unknown]
  - Pruritus [Unknown]
  - Vomiting [Unknown]
  - Muscle spasms [Unknown]
  - Bone pain [Unknown]
  - Pyrexia [Unknown]
  - Abdominal pain upper [Unknown]
  - Hypotension [Recovering/Resolving]
  - Joint swelling [Not Recovered/Not Resolved]
  - Oedema peripheral [Not Recovered/Not Resolved]

NARRATIVE: CASE EVENT DATE: 20200601
